FAERS Safety Report 6807095-6 (Version None)
Quarter: 2010Q2

REPORT INFORMATION
  Report Type: 
  Country: None (occurrence: None)
  Receive Date: 20100629
  Receipt Date: 20080812
  Transmission Date: 20101027
  Serious: No
  Sender: FDA-Public Use
  Company Number: US-PFIZER INC-2008055690

PATIENT
  Sex: Male

DRUGS (1)
  1. MEDROL [Suspect]
     Dosage: 6 EVERY 1 DAYS

REACTIONS (1)
  - HEADACHE [None]
